FAERS Safety Report 6855501-3 (Version None)
Quarter: 2010Q3

REPORT INFORMATION
  Report Type: 
  Country: None (occurrence: None)
  Receive Date: 20100719
  Receipt Date: 20100707
  Transmission Date: 20110219
  Serious: No
  Sender: FDA-Public Use
  Company Number: US-JNJFOC-20100603346

PATIENT
  Sex: Female
  Weight: 68.04 kg

DRUGS (5)
  1. DURAGESIC-100 [Suspect]
     Indication: PAIN
     Dosage: 100UG/HR+75UG/HR
     Route: 062
  2. DURAGESIC-100 [Suspect]
     Dosage: 100UG/HR+75UG/HR
     Route: 062
  3. FOLIC ACID [Concomitant]
     Route: 048
  4. GABAPENTIN [Concomitant]
     Indication: NEUROPATHY PERIPHERAL
     Route: 048
  5. MOBIC [Concomitant]
     Indication: RHEUMATOID ARTHRITIS
     Route: 048

REACTIONS (1)
  - DRUG ADMINISTERED AT INAPPROPRIATE SITE [None]
